FAERS Safety Report 4266817-1 (Version None)
Quarter: 2004Q1

REPORT INFORMATION
  Report Type: 
  Country: None (occurrence: None)
  Receive Date: 20040108
  Receipt Date: 20030623
  Transmission Date: 20041129
  Serious: No
  Sender: FDA-Public Use
  Company Number: US-GLAXOSMITHKLINE-A0413600A

PATIENT
  Age: 56 Year
  Sex: Male

DRUGS (4)
  1. EPIVIR [Suspect]
     Indication: HIV INFECTION
     Dosage: 150MG TWICE PER DAY
     Route: 048
     Dates: start: 20030616
  2. SUSTIVA [Concomitant]
  3. TENOFOVIR [Concomitant]
  4. ACYCLOVIR [Concomitant]

REACTIONS (1)
  - DIARRHOEA [None]
